FAERS Safety Report 13098304 (Version 1)
Quarter: 2017Q1

REPORT INFORMATION
  Report Type: Spontaneous
  Country: US (occurrence: US)
  Receive Date: 20170109
  Receipt Date: 20170109
  Transmission Date: 20170428
  Serious: No
  Sender: FDA-Public Use
  Company Number: US-PFIZER INC-2017004702

PATIENT
  Age: 36 Year
  Sex: Female
  Weight: 68.93 kg

DRUGS (1)
  1. SKELAXIN [Suspect]
     Active Substance: METAXALONE
     Dosage: UNK

REACTIONS (2)
  - Nausea [Unknown]
  - Drug hypersensitivity [Unknown]
